FAERS Safety Report 17560721 (Version 4)
Quarter: 2020Q1

REPORT INFORMATION
  Report Type: Spontaneous
  Country: CH (occurrence: CH)
  Receive Date: 20200319
  Receipt Date: 20200326
  Transmission Date: 20200409
  Serious: Yes (Hospitalization)
  Sender: FDA-Public Use
  Company Number: CH-PFIZER INC-2020117211

PATIENT
  Age: 68 Year
  Sex: Female
  Weight: 67 kg

DRUGS (16)
  1. VIMPAT [Suspect]
     Active Substance: LACOSAMIDE
     Indication: SEIZURE PROPHYLAXIS
     Dosage: 200 MG, 2X/DAY
     Route: 065
     Dates: start: 20191118, end: 20191119
  2. ORFIRIL [Suspect]
     Active Substance: VALPROATE SODIUM
     Dosage: 300 MG, 2X/DAY
     Route: 065
     Dates: start: 20191126, end: 20191127
  3. ORFIRIL [Suspect]
     Active Substance: VALPROATE SODIUM
     Dosage: 500 MG, 1X/DAY
     Route: 065
     Dates: start: 20191212
  4. APYDAN [OXCARBAZEPINE] [Suspect]
     Active Substance: OXCARBAZEPINE
     Dosage: 300 MG, 2X/DAY
     Route: 065
     Dates: start: 20191127, end: 20191205
  5. URBANYL [Suspect]
     Active Substance: CLOBAZAM
     Indication: SEIZURE PROPHYLAXIS
     Dosage: UNK
     Route: 065
     Dates: start: 20191129, end: 20191223
  6. ORFIRIL [Suspect]
     Active Substance: VALPROATE SODIUM
     Dosage: 1500 MG, 1X/DAY
     Route: 065
     Dates: start: 20191128, end: 20191205
  7. BRIVIACT [Suspect]
     Active Substance: BRIVARACETAM
     Indication: PROPHYLAXIS
     Dosage: 200 MG, 1X/DAY
     Route: 065
     Dates: start: 20191126
  8. APYDAN [OXCARBAZEPINE] [Suspect]
     Active Substance: OXCARBAZEPINE
     Dosage: 150 MG, 2X/DAY
     Route: 065
     Dates: start: 20191205, end: 20191210
  9. APYDAN [OXCARBAZEPINE] [Suspect]
     Active Substance: OXCARBAZEPINE
     Dosage: 75 MG, 2X/DAY
     Route: 065
     Dates: start: 20191210, end: 20191213
  10. VIMPAT [Suspect]
     Active Substance: LACOSAMIDE
     Dosage: 100 MG, 2X/DAY
     Route: 065
     Dates: start: 20191120, end: 20191129
  11. KEPPRA [Suspect]
     Active Substance: LEVETIRACETAM
     Indication: SEIZURE PROPHYLAXIS
     Dosage: UNK
     Route: 065
     Dates: start: 20191117, end: 20191125
  12. ORFIRIL [Suspect]
     Active Substance: VALPROATE SODIUM
     Dosage: 500 MG, 2X/DAY
     Route: 065
     Dates: start: 20191119, end: 20191125
  13. PANTOZOL [Suspect]
     Active Substance: PANTOPRAZOLE SODIUM
     Dosage: UNK, DAILY
     Route: 065
     Dates: start: 20191117
  14. ORFIRIL [Suspect]
     Active Substance: VALPROATE SODIUM
     Dosage: 500 MG, 2X/DAY
     Route: 065
     Dates: start: 20191205, end: 20191209
  15. VIMPAT [Suspect]
     Active Substance: LACOSAMIDE
     Dosage: 150 MG, 2X/DAY
     Route: 065
     Dates: start: 20191130
  16. ORFIRIL [Suspect]
     Active Substance: VALPROATE SODIUM
     Dosage: 300 MG, 2X/DAY
     Route: 065
     Dates: start: 20191209, end: 20191211

REACTIONS (2)
  - Transaminases increased [Recovered/Resolved]
  - Ammonia increased [Recovered/Resolved]

NARRATIVE: CASE EVENT DATE: 20191202
